FAERS Safety Report 4886345-X (Version None)
Quarter: 2006Q1

REPORT INFORMATION
  Report Type: 
  Country: None (occurrence: None)
  Receive Date: 20060120
  Receipt Date: 20050921
  Transmission Date: 20060701
  Serious: Yes (Hospitalization, Disabling)
  Sender: FDA-Public Use
  Company Number: US-MERCK-0509USA03064

PATIENT
  Age: 50 Year
  Sex: Male
  Weight: 155 kg

DRUGS (9)
  1. ORPHENADRINE [Concomitant]
     Route: 065
  2. DICLOFENAC [Concomitant]
     Route: 065
  3. VICODIN [Concomitant]
     Route: 065
  4. VIAGRA [Concomitant]
     Route: 065
  5. ALLOPURINOL [Concomitant]
     Route: 065
  6. NORFLEX [Concomitant]
     Route: 065
  7. VIOXX [Suspect]
     Indication: ARTHRITIS
     Route: 048
     Dates: start: 19991213, end: 20050101
  8. VIOXX [Suspect]
     Indication: ARTHRALGIA
     Route: 048
     Dates: start: 19991213, end: 20050101
  9. LORCET-HD [Concomitant]
     Route: 065

REACTIONS (7)
  - BACK PAIN [None]
  - CHEST PAIN [None]
  - DEPRESSION [None]
  - DYSPNOEA [None]
  - HAEMATOCHEZIA [None]
  - MUSCULOSKELETAL STIFFNESS [None]
  - PYREXIA [None]
